FAERS Safety Report 24453247 (Version 2)
Quarter: 2024Q4

REPORT INFORMATION
  Report Type: Report from Study
  Country: US (occurrence: US)
  Receive Date: 20241017
  Receipt Date: 20241018
  Transmission Date: 20250114
  Serious: No
  Sender: ROCHE
  Company Number: US-ROCHE-3283838

PATIENT
  Age: 9 Year
  Sex: Male
  Weight: 25.1 kg

DRUGS (6)
  1. RITUXAN [Suspect]
     Active Substance: RITUXIMAB
     Indication: Encephalitis
     Dosage: 750 MG ON DAY 1 AND DAY 14, THEN EVERY 3 MONTHS FOR 1 YEAR
     Route: 065
  2. RITUXAN [Suspect]
     Active Substance: RITUXIMAB
     Indication: Encephalomyelitis
  3. RITUXAN [Suspect]
     Active Substance: RITUXIMAB
     Indication: Dyslexia
     Dosage: STRENGTH (10 MG/ML)
     Route: 041
  4. RITUXAN [Suspect]
     Active Substance: RITUXIMAB
     Indication: Attention deficit hyperactivity disorder
  5. HYDROXYCHLOROQUINE [Concomitant]
     Active Substance: HYDROXYCHLOROQUINE
  6. CLONIDINE [Concomitant]
     Active Substance: CLONIDINE

REACTIONS (2)
  - Off label use [Unknown]
  - No adverse event [Unknown]
